FAERS Safety Report 9559186 (Version 1)
Quarter: 2013Q3

REPORT INFORMATION
  Report Type: Other
  Country: US (occurrence: US)
  Receive Date: 20130927
  Receipt Date: 20130927
  Transmission Date: 20140515
  Serious: Yes (Hospitalization)
  Sender: FDA-Public Use
  Company Number: US-SHIRE-ALL1-2013-06406

PATIENT
  Age: 50 Year
  Sex: Female
  Weight: 89.34 kg

DRUGS (1)
  1. FIRAZYR [Suspect]
     Indication: HEREDITARY ANGIOEDEMA
     Dosage: 30 G, AS REQ^D
     Route: 058
     Dates: start: 20130225

REACTIONS (2)
  - Hospitalisation [Recovered/Resolved]
  - Drug dose omission [Unknown]
